FAERS Safety Report 5443916-X (Version None)
Quarter: 2007Q3

REPORT INFORMATION
  Report Type: 
  Country: None (occurrence: None)
  Receive Date: 20070905
  Receipt Date: 20070831
  Transmission Date: 20080115
  Serious: Yes (Life-Threatening)
  Sender: FDA-Public Use
  Company Number: GB-BOEHRINGER INGELHEIM PHARMACEUTICALS, INC.-2007-UK-02743UK

PATIENT
  Age: 57 Year
  Sex: Female

DRUGS (6)
  1. MOBIC [Suspect]
     Indication: CANCER PAIN
     Route: 048
     Dates: start: 20070807, end: 20070810
  2. MOBIC [Suspect]
     Route: 048
  3. DOMPERIDONE [Concomitant]
     Indication: NAUSEA
     Route: 048
  4. OMEPRAZOLE [Concomitant]
     Indication: NAUSEA
     Route: 048
     Dates: start: 20070728
  5. OXYCONTIN [Concomitant]
     Indication: PAIN
     Route: 048
     Dates: start: 20070805
  6. TRANEXAMIC ACID [Concomitant]
     Indication: VAGINAL HAEMORRHAGE
     Route: 048

REACTIONS (3)
  - BLOOD CREATININE INCREASED [None]
  - HAEMORRHAGE [None]
  - RENAL IMPAIRMENT [None]
